FAERS Safety Report 4881980-7 (Version None)
Quarter: 2006Q1

REPORT INFORMATION
  Report Type: 
  Country: None (occurrence: None)
  Receive Date: 20060117
  Receipt Date: 20051221
  Transmission Date: 20060701
  Serious: Yes (Hospitalization)
  Sender: FDA-Public Use
  Company Number: PHBS2005JP18881

PATIENT
  Age: 57 Year
  Sex: Female
  Weight: 41 kg

DRUGS (4)
  1. GLEEVEC [Suspect]
     Indication: CHRONIC MYELOID LEUKAEMIA
     Dosage: 400 MG/DAY
     Route: 048
     Dates: start: 20030623, end: 20030702
  2. GLEEVEC [Suspect]
     Dosage: 100 MG/DAY
     Route: 048
     Dates: start: 20030701
  3. GLEEVEC [Suspect]
     Dosage: 400 MG/DAY
     Route: 048
  4. METHYLPREDNISOLONE [Concomitant]
     Dosage: 125 MG/DAY
     Route: 041
     Dates: start: 20030702, end: 20030702

REACTIONS (11)
  - ANOREXIA [None]
  - BLOOD LACTATE DEHYDROGENASE INCREASED [None]
  - C-REACTIVE PROTEIN INCREASED [None]
  - CHILLS [None]
  - ERYTHEMA [None]
  - GENERALISED ERYTHEMA [None]
  - NEUTROPHIL COUNT INCREASED [None]
  - PRURITUS GENERALISED [None]
  - PYREXIA [None]
  - RASH [None]
  - TREMOR [None]
